FAERS Safety Report 20512343 (Version 1)
Quarter: 2022Q1

REPORT INFORMATION
  Report Type: Spontaneous
  Country: NL (occurrence: NL)
  Receive Date: 20220224
  Receipt Date: 20220224
  Transmission Date: 20220424
  Serious: Yes (Other)
  Sender: FDA-Public Use
  Company Number: None

PATIENT
  Sex: Female
  Weight: 63.8 kg

DRUGS (6)
  1. CYCLOPENTOLATE HYDROCHLORIDE [Suspect]
     Active Substance: CYCLOPENTOLATE HYDROCHLORIDE
     Indication: Pupil dilation procedure
     Dosage: 1 DROP IN EACH EYE 4 TIMES A DAY
     Route: 065
     Dates: start: 20220203
  2. ETORICOXIB [Concomitant]
     Active Substance: ETORICOXIB
     Indication: Product used for unknown indication
     Dosage: FILMOMHULDE TABLET, 30 MG (MILLIGRAM)
     Route: 065
  3. MONTELUKAST [Concomitant]
     Active Substance: MONTELUKAST SODIUM
     Indication: Product used for unknown indication
     Route: 065
  4. DESLORATADINE [Concomitant]
     Active Substance: DESLORATADINE
     Indication: Product used for unknown indication
     Route: 065
  5. METOPROLOL [Concomitant]
     Active Substance: METOPROLOL
     Indication: Product used for unknown indication
     Route: 065
  6. PANTOPRAZOL TABLET MSR 20MG/ MAAGZUURTABLET PANTOPRAZOL HTP TABLET MSR [Concomitant]
     Indication: Product used for unknown indication
     Dosage: MAAGSAPRESISTENTE TABLET, 40MG
     Route: 065

REACTIONS (1)
  - Epilepsy [Recovered/Resolved]
